FAERS Safety Report 6506650-0 (Version None)
Quarter: 2009Q4

REPORT INFORMATION
  Report Type: 
  Country: None (occurrence: None)
  Receive Date: 20091221
  Receipt Date: 20091214
  Transmission Date: 20100525
  Serious: Yes (Hospitalization)
  Sender: FDA-Public Use
  Company Number: DE-AMGEN-UK226329

PATIENT
  Sex: Female
  Weight: 61.5 kg

DRUGS (15)
  1. ARANESP [Suspect]
     Indication: RENAL FAILURE CHRONIC
     Route: 042
     Dates: start: 20051027
  2. METOPROLOL TARTRATE [Concomitant]
     Route: 048
  3. CAPTOPRIL [Concomitant]
     Route: 048
  4. OMEPRAZOLE [Concomitant]
     Route: 048
  5. CALCIUM ACETATE [Concomitant]
     Route: 048
  6. DIGITOXIN INJ [Concomitant]
     Route: 048
  7. VITARENAL [Concomitant]
     Route: 048
  8. MARCUMAR [Concomitant]
     Route: 048
  9. ANTIHYPERTENSIVES [Concomitant]
  10. VITAMIN B COMPLEX CAP [Concomitant]
  11. ASCORBIC ACID [Concomitant]
  12. INSULIN [Concomitant]
  13. CALCITRIOL [Concomitant]
  14. UNSPECIFIED VITAMINS [Concomitant]
  15. FUROSEMIDE [Concomitant]

REACTIONS (2)
  - SHUNT OCCLUSION [None]
  - SHUNT THROMBOSIS [None]
